FAERS Safety Report 16841038 (Version 1)
Quarter: 2019Q3

REPORT INFORMATION
  Report Type: Spontaneous
  Country: US (occurrence: US)
  Receive Date: 20190923
  Receipt Date: 20190923
  Transmission Date: 20191005
  Serious: No
  Sender: FDA-Public Use
  Company Number: US-SA-2019SA257291

PATIENT
  Age: 69 Year
  Sex: Female

DRUGS (1)
  1. PRALUENT [Suspect]
     Active Substance: ALIROCUMAB
     Indication: OSTEOPOROSIS
     Dosage: 150 MG, QOW
     Route: 058
     Dates: start: 20190716

REACTIONS (1)
  - Headache [Unknown]
